FAERS Safety Report 19439835 (Version 1)
Quarter: 2021Q2

REPORT INFORMATION
  Report Type: Spontaneous
  Country: US (occurrence: US)
  Receive Date: 20210620
  Receipt Date: 20210620
  Transmission Date: 20210717
  Serious: No
  Sender: FDA-Public Use
  Company Number: US-BIOGEN-2019BI00785315

PATIENT
  Sex: Female

DRUGS (2)
  1. TECFIDERA [Suspect]
     Active Substance: DIMETHYL FUMARATE
     Indication: MULTIPLE SCLEROSIS
     Route: 048
     Dates: start: 2015
  2. TECFIDERA [Suspect]
     Active Substance: DIMETHYL FUMARATE
     Route: 065
     Dates: start: 20150910

REACTIONS (5)
  - Rhinorrhoea [Not Recovered/Not Resolved]
  - Rosacea [Not Recovered/Not Resolved]
  - Rhinitis [Unknown]
  - Flushing [Not Recovered/Not Resolved]
  - White blood cell count decreased [Recovered/Resolved]
